FAERS Safety Report 12612107 (Version 2)
Quarter: 2016Q3

REPORT INFORMATION
  Report Type: Report from Study
  Country: CO (occurrence: CO)
  Receive Date: 20160801
  Receipt Date: 20160829
  Transmission Date: 20161109
  Serious: Yes (Hospitalization, Other)
  Sender: FDA-Public Use
  Company Number: CO-JNJFOC-20160728512

PATIENT
  Age: 57 Year
  Sex: Female
  Weight: 65 kg

DRUGS (5)
  1. VALPROIC ACID. [Concomitant]
     Active Substance: VALPROIC ACID
     Dosage: TWICE IN MORNING, ONCE IN AFTERNOON AND TWICE IN EVENING
     Route: 065
  2. BIPERIDEN [Concomitant]
     Active Substance: BIPERIDEN
     Route: 065
  3. CLONAZEPAM. [Concomitant]
     Active Substance: CLONAZEPAM
     Route: 065
  4. RISPERDAL CONSTA [Suspect]
     Active Substance: RISPERIDONE
     Indication: BIPOLAR DISORDER
     Route: 030
     Dates: start: 20130915
  5. LEVOTHYROXINE. [Concomitant]
     Active Substance: LEVOTHYROXINE
     Route: 065

REACTIONS (6)
  - Incoherent [Not Recovered/Not Resolved]
  - Mania [Recovered/Resolved]
  - Akathisia [Recovered/Resolved]
  - Decreased appetite [Not Recovered/Not Resolved]
  - Insomnia [Recovered/Resolved]
  - Anxiety [Not Recovered/Not Resolved]

NARRATIVE: CASE EVENT DATE: 20160717
